FAERS Safety Report 8916405 (Version 1)
Quarter: 2012Q4

REPORT INFORMATION
  Report Type: 
  Country: GB (occurrence: GB)
  Receive Date: 20121120
  Receipt Date: 20121120
  Transmission Date: 20130627
  Serious: Yes (Death)
  Sender: FDA-Public Use
  Company Number: GB-WATSON-2012-19440

PATIENT
  Age: 100 Year
  Sex: Female

DRUGS (6)
  1. FENTANYL (UNKNOWN) [Suspect]
     Indication: PAIN
     Dosage: 12ug
     Route: 062
     Dates: start: 20121016, end: 20121018
  2. TRIMETHOPRIM [Concomitant]
     Indication: URINARY TRACT INFECTION
     Dosage: Unknown
     Route: 048
     Dates: start: 20121012, end: 20121014
  3. AMOXICILLIN\CLAVULANATE POTASSIUM [Concomitant]
     Indication: URINARY TRACT INFECTION
     Dosage: Unknown
     Route: 048
     Dates: start: 20121014, end: 20121017
  4. PARACETAMOL [Concomitant]
     Indication: PRODUCT USED FOR UNKNOWN INDICATION
     Dosage: Started 3 years ago.
     Route: 048
  5. IBUPROFEN [Concomitant]
     Indication: PRODUCT USED FOR UNKNOWN INDICATION
     Dosage: Started 3 years ago.
     Route: 048
  6. CO-AMILOFRUSE [Concomitant]
     Indication: PRODUCT USED FOR UNKNOWN INDICATION
     Dosage: Started 3 years ago.
     Route: 048

REACTIONS (2)
  - Allodynia [Unknown]
  - Death [Fatal]
